FAERS Safety Report 13381827 (Version 1)
Quarter: 2017Q1

REPORT INFORMATION
  Report Type: Spontaneous
  Country: US (occurrence: US)
  Receive Date: 20170329
  Receipt Date: 20170329
  Transmission Date: 20170429
  Serious: Yes (Other)
  Sender: FDA-Public Use
  Company Number: None

PATIENT
  Age: 38 Year
  Sex: Female
  Weight: 57.6 kg

DRUGS (3)
  1. BUPROPION HCL 100MG [Suspect]
     Active Substance: BUPROPION HYDROCHLORIDE
     Indication: DEPRESSION
     Dosage: ?          QUANTITY:1 TABLET(S);OTHER ROUTE:ORAL?
     Route: 048
  2. HYDROXYINE HCL [Concomitant]
     Active Substance: HYDROXYZINE HYDROCHLORIDE
  3. BENZTROPINE MES [Concomitant]
     Active Substance: BENZTROPINE MESYLATE

REACTIONS (3)
  - Product quality issue [None]
  - Anxiety [None]
  - Depression [None]

NARRATIVE: CASE EVENT DATE: 20161010
